FAERS Safety Report 10039922 (Version 2)
Quarter: 2014Q2

REPORT INFORMATION
  Report Type: Spontaneous
  Country: US (occurrence: US)
  Receive Date: 20140326
  Receipt Date: 20140422
  Transmission Date: 20141212
  Serious: Yes (Other)
  Sender: FDA-Public Use
  Company Number: US-PFIZER INC-2014083762

PATIENT
  Age: 61 Year
  Sex: Female
  Weight: 55.32 kg

DRUGS (8)
  1. LEVOXYL [Suspect]
     Indication: HYPOTHYROIDISM
     Dosage: 112 UG, 1X/DAY
     Dates: start: 2006
  2. LEVOTHYROXINE SODIUM [Suspect]
     Dosage: UNK
  3. SYNTHROID [Suspect]
     Dosage: UNK
  4. ARMOUR THYROID [Suspect]
     Dosage: UNK
  5. TRINOSIN [Suspect]
     Dosage: UNK
  6. OXYCODONE [Suspect]
     Dosage: UNK
  7. MORPHINE [Suspect]
     Dosage: UNK
  8. ZANAFLEX [Concomitant]
     Indication: MUSCLE RELAXANT THERAPY
     Dosage: UNK

REACTIONS (2)
  - Back disorder [Unknown]
  - Drug intolerance [Unknown]
